FAERS Safety Report 13523855 (Version 3)
Quarter: 2017Q4

REPORT INFORMATION
  Report Type: Spontaneous
  Country: US (occurrence: US)
  Receive Date: 20170508
  Receipt Date: 20171207
  Transmission Date: 20180320
  Serious: No
  Sender: FDA-Public Use
  Company Number: US-VIFOR (INTERNATIONAL) INC.-VIT-2017-04349

PATIENT
  Sex: Male
  Weight: 76.73 kg

DRUGS (14)
  1. VELTASSA [Suspect]
     Active Substance: PATIROMER
  2. OMEPRAZOLE. [Concomitant]
     Active Substance: OMEPRAZOLE
  3. CELLCEPT [Concomitant]
     Active Substance: MYCOPHENOLATE MOFETIL\MYCOPHENOLATE MOFETIL HYDROCHLORIDE
  4. HYDROCHLOROTHIAZIDE/METOPROLOL [Concomitant]
  5. VELTASSA [Suspect]
     Active Substance: PATIROMER
     Indication: HYPERKALAEMIA
     Route: 048
     Dates: start: 20160812, end: 2017
  6. NIFEDIPINE. [Concomitant]
     Active Substance: NIFEDIPINE
  7. PROGRAF [Concomitant]
     Active Substance: TACROLIMUS\TACROLIMUS ANHYDROUS
  8. MAGNESIUM [Concomitant]
     Active Substance: MAGNESIUM
  9. HYDROCHLOROTHIAZIDE. [Concomitant]
     Active Substance: HYDROCHLOROTHIAZIDE
  10. DIOVAN [Concomitant]
     Active Substance: VALSARTAN
  11. SIMVASTATIN. [Concomitant]
     Active Substance: SIMVASTATIN
  12. VELTASSA [Suspect]
     Active Substance: PATIROMER
     Route: 048
  13. MAGNESIUM [Concomitant]
     Active Substance: MAGNESIUM
  14. ASPIR-81 [Concomitant]
     Active Substance: ASPIRIN

REACTIONS (3)
  - Feeling abnormal [Recovered/Resolved]
  - Abdominal discomfort [Recovered/Resolved]
  - Product taste abnormal [Unknown]

NARRATIVE: CASE EVENT DATE: 2016
